FAERS Safety Report 6022057-7 (Version None)
Quarter: 2008Q4

REPORT INFORMATION
  Report Type: 
  Country: None (occurrence: None)
  Receive Date: 20081229
  Receipt Date: 20081223
  Transmission Date: 20090506
  Serious: Yes (Death)
  Sender: FDA-Public Use
  Company Number: US-ASTRAZENECA-2008AC03258

PATIENT
  Age: 37 Year
  Sex: Male

DRUGS (13)
  1. QUETIAPINE [Suspect]
     Route: 048
  2. LITHIUM [Suspect]
     Route: 048
  3. BUPROPION [Suspect]
     Route: 048
  4. BACLOFEN [Suspect]
     Route: 048
  5. PROMETHAZINE [Suspect]
     Route: 048
  6. METHADON HCL TAB [Suspect]
     Route: 048
  7. DULOXETINE [Suspect]
     Route: 048
  8. CLONAZEPAM [Suspect]
     Route: 048
  9. ZOLPIDEM [Suspect]
     Route: 048
  10. LEVOTHYROXINE [Suspect]
     Route: 048
  11. LAMOTRIGINE [Suspect]
     Route: 048
  12. EFAVIRENZ [Suspect]
     Route: 048
  13. EMTRICITABINE/TENOFOVIR [Suspect]
     Route: 048

REACTIONS (2)
  - CARDIO-RESPIRATORY ARREST [None]
  - COMPLETED SUICIDE [None]
